FAERS Safety Report 15322926 (Version 1)
Quarter: 2018Q3

REPORT INFORMATION
  Report Type: Spontaneous
  Country: US (occurrence: US)
  Receive Date: 20180822
  Receipt Date: 20180822
  Transmission Date: 20181010
  Serious: Yes (Hospitalization)
  Sender: FDA-Public Use
  Company Number: None

PATIENT
  Sex: Female

DRUGS (7)
  1. ASPIRIN. [Concomitant]
     Active Substance: ASPIRIN
  2. BUPROPION. [Concomitant]
     Active Substance: BUPROPION
  3. ENBREL [Suspect]
     Active Substance: ETANERCEPT
     Indication: PSORIASIS
     Route: 058
     Dates: start: 20180424
  4. OTEZLA [Concomitant]
     Active Substance: APREMILAST
  5. XANAX [Concomitant]
     Active Substance: ALPRAZOLAM
  6. MELOXICAM. [Concomitant]
     Active Substance: MELOXICAM
  7. LAMOTRIGINE. [Concomitant]
     Active Substance: LAMOTRIGINE

REACTIONS (1)
  - Inappropriate schedule of drug administration [None]
